FAERS Safety Report 5859352-8 (Version None)
Quarter: 2008Q3

REPORT INFORMATION
  Report Type: 
  Country: None (occurrence: None)
  Receive Date: 20080827
  Receipt Date: 20080813
  Transmission Date: 20090109
  Serious: Yes (Death, Hospitalization)
  Sender: FDA-Public Use
  Company Number: JP-AMGEN-US294622

PATIENT
  Sex: Female
  Weight: 33 kg

DRUGS (8)
  1. ENBREL [Suspect]
     Indication: RHEUMATOID ARTHRITIS
     Route: 058
     Dates: start: 20050927, end: 20070611
  2. ALFACALCIDOL [Concomitant]
     Route: 065
  3. ACTARIT [Concomitant]
     Indication: RHEUMATOID ARTHRITIS
     Route: 048
     Dates: end: 20060110
  4. LOXONIN [Concomitant]
     Indication: RHEUMATOID ARTHRITIS
     Route: 065
  5. CINAL [Concomitant]
     Route: 065
  6. KETOPROFEN [Concomitant]
     Route: 065
  7. SELBEX [Concomitant]
     Route: 065
  8. TETUCUR [Concomitant]
     Route: 065

REACTIONS (2)
  - DECUBITUS ULCER [None]
  - PNEUMONIA [None]
